FAERS Safety Report 4412006-7 (Version None)
Quarter: 2004Q3

REPORT INFORMATION
  Report Type: 
  Country: None (occurrence: None)
  Receive Date: 20040730
  Receipt Date: 20040625
  Transmission Date: 20050211
  Serious: No
  Sender: FDA-Public Use
  Company Number: PHEH2004US06918

PATIENT
  Age: 88 Year
  Sex: Female
  Weight: 42 kg

DRUGS (7)
  1. MIACALCIN [Suspect]
     Indication: OSTEOPOROSIS
     Dosage: 200 IU, QD
     Route: 045
     Dates: start: 20030501
  2. PROCARDIA [Concomitant]
     Dosage: 60 MG, QD
  3. ATENOLOL [Concomitant]
  4. MEGACE [Concomitant]
     Dosage: 1 TSP, QD
  5. OSCAL 500-D [Concomitant]
  6. ZANTAC [Concomitant]
     Dosage: 150 MG, BID
  7. BOOST [Concomitant]

REACTIONS (2)
  - ASTHENIA [None]
  - SOMNOLENCE [None]
